FAERS Safety Report 4701043-0 (Version None)
Quarter: 2005Q2

REPORT INFORMATION
  Report Type: 
  Country: None (occurrence: None)
  Receive Date: 20050628
  Receipt Date: 20050614
  Transmission Date: 20051028
  Serious: Yes (Hospitalization)
  Sender: FDA-Public Use
  Company Number: CZ-JNJFOC-20050603453

PATIENT
  Sex: Male

DRUGS (3)
  1. REMICADE [Suspect]
     Indication: ANKYLOSING SPONDYLITIS
     Dosage: 2 INFUSIONS
     Route: 042
  2. ISONIAZID [Concomitant]
     Route: 065
     Dates: start: 20050323
  3. PYRIDOXIN [Concomitant]
     Route: 065
     Dates: start: 20050323

REACTIONS (3)
  - DYSPNOEA [None]
  - EPIGLOTTITIS [None]
  - WHITE BLOOD CELL COUNT INCREASED [None]
